FAERS Safety Report 19241010 (Version 1)
Quarter: 2021Q2

REPORT INFORMATION
  Report Type: Spontaneous
  Country: US (occurrence: US)
  Receive Date: 20210510
  Receipt Date: 20210510
  Transmission Date: 20210717
  Serious: No
  Sender: FDA-Public Use
  Company Number: None

PATIENT
  Sex: Female

DRUGS (2)
  1. RUXIENCE [Suspect]
     Active Substance: RITUXIMAB-PVVR
     Indication: PRODUCT USED FOR UNKNOWN INDICATION
     Dosage: ?          QUANTITY:1 INFUSION;OTHER FREQUENCY:WEEKLY;OTHER ROUTE:INFUSION?
  2. RUXIENCE [Suspect]
     Active Substance: RITUXIMAB-PVVR
     Indication: PRODUCT USED FOR UNKNOWN INDICATION
     Dosage: ?          QUANTITY:1 INFUSION;OTHER FREQUENCY:WEEKLY;OTHER ROUTE:INFUSION?

REACTIONS (3)
  - Chills [None]
  - Hypotension [None]
  - Therapy interrupted [None]
